FAERS Safety Report 6693241-4 (Version None)
Quarter: 2010Q2

REPORT INFORMATION
  Report Type: 
  Country: None (occurrence: None)
  Receive Date: 20100421
  Receipt Date: 20100421
  Transmission Date: 20101027
  Serious: Yes (Other)
  Sender: FDA-Public Use
  Company Number: None

PATIENT
  Sex: Female
  Weight: 57.1532 kg

DRUGS (1)
  1. TAXOTERE [Suspect]
     Indication: BREAST CANCER
     Dosage: UNKNOWN  ONCE PER 3 WKS IV DRIP, 4 TREATMENTS OVER 9 WEEKS
     Route: 041
     Dates: start: 20100112, end: 20100316

REACTIONS (8)
  - BURNING SENSATION [None]
  - CHEMICAL BURN OF SKIN [None]
  - ERYTHEMA [None]
  - FEELING HOT [None]
  - INFUSION RELATED REACTION [None]
  - INFUSION SITE PAIN [None]
  - INJURY [None]
  - SKIN DISCOLOURATION [None]
